FAERS Safety Report 18937455 (Version 2)
Quarter: 2021Q1

REPORT INFORMATION
  Report Type: Spontaneous
  Country: US (occurrence: US)
  Receive Date: 20210224
  Receipt Date: 20210303
  Transmission Date: 20210420
  Serious: Yes (Other)
  Sender: FDA-Public Use
  Company Number: US-GLAXOSMITHKLINE-US2021GSK051406

PATIENT
  Sex: Male

DRUGS (11)
  1. RANITIDINE. [Suspect]
     Active Substance: RANITIDINE
     Dosage: 300 ? 450 MSG|BOTH
     Route: 065
     Dates: start: 199001, end: 201501
  2. RANITIDINE. [Suspect]
     Active Substance: RANITIDINE
     Dosage: 300 ? 450 MSG|BOTH
     Route: 065
     Dates: start: 199001, end: 201501
  3. ZANTAC [Suspect]
     Active Substance: RANITIDINE HYDROCHLORIDE
     Indication: DYSPEPSIA
     Dosage: UNK, QD
     Route: 065
     Dates: start: 199001, end: 201501
  4. RANITIDINE. [Suspect]
     Active Substance: RANITIDINE
     Indication: DYSPEPSIA
     Dosage: 300 MG BOTH
     Route: 065
     Dates: start: 199001, end: 201501
  5. RANITIDINE. [Suspect]
     Active Substance: RANITIDINE
     Dosage: 300 ? 450 MSG|BOTH
     Route: 065
     Dates: start: 199001, end: 201501
  6. RANITIDINE CAPSULE [Suspect]
     Active Substance: RANITIDINE
     Dosage: 300 ? 450 MSG|BOTH
     Route: 065
     Dates: start: 199001, end: 201501
  7. RANITIDINE CAPSULE [Suspect]
     Active Substance: RANITIDINE
     Indication: DYSPEPSIA
     Dosage: 300 MG BOTH
     Route: 065
     Dates: start: 199001, end: 201501
  8. RANITIDINE. [Suspect]
     Active Substance: RANITIDINE
     Indication: DYSPEPSIA
     Dosage: 300 MG BOTH
     Route: 065
     Dates: start: 199001, end: 201501
  9. RANITIDINE. [Suspect]
     Active Substance: RANITIDINE
     Indication: DYSPEPSIA
     Dosage: 300 MG BOTH
     Route: 065
     Dates: start: 199001, end: 201501
  10. ZANTAC [Suspect]
     Active Substance: RANITIDINE HYDROCHLORIDE
     Indication: DYSPEPSIA
     Dosage: 300 ? 450 MSG|BOTH
     Route: 065
     Dates: start: 199001, end: 201501
  11. ZANTAC [Suspect]
     Active Substance: RANITIDINE HYDROCHLORIDE
     Indication: DYSPEPSIA
     Dosage: 300 ? 450 MSG|BOTH
     Route: 065
     Dates: start: 199001, end: 201501

REACTIONS (1)
  - Prostate cancer [Unknown]
